FAERS Safety Report 7450105-6 (Version None)
Quarter: 2011Q2

REPORT INFORMATION
  Report Type: 
  Country: None (occurrence: None)
  Receive Date: 20110421
  Receipt Date: 20110330
  Transmission Date: 20111010
  Serious: Yes (Other)
  Sender: FDA-Public Use
  Company Number: 2280705-2011-00017

PATIENT
  Sex: Male

DRUGS (1)
  1. BABY ORAJEL ORAL PAIN RELIEVER FOR TEETHING [Suspect]
     Indication: TEETHING
     Dosage: ORAL APPLICATION
     Dates: start: 20110329

REACTIONS (2)
  - DYSPNOEA [None]
  - RESPIRATORY ARREST [None]
